FAERS Safety Report 9414619 (Version 3)
Quarter: 2013Q4

REPORT INFORMATION
  Report Type: Report from Study
  Country: US (occurrence: US)
  Receive Date: 20130723
  Receipt Date: 20131017
  Transmission Date: 20140711
  Serious: Yes (Other)
  Sender: FDA-Public Use
  Company Number: US-UCBSA-091842

PATIENT
  Age: 0 None
  Sex: Male
  Weight: 1.86 kg

DRUGS (8)
  1. CIMZIA [Suspect]
     Indication: CROHN^S DISEASE
     Dosage: DOSE: UNKNOWN
     Route: 064
     Dates: start: 20120305, end: 20121005
  2. MESALAMINE [Concomitant]
     Indication: CROHN^S DISEASE
     Route: 064
     Dates: start: 20120213, end: 20121005
  3. BUDESONIDE [Concomitant]
     Indication: CROHN^S DISEASE
     Route: 064
     Dates: start: 20120213, end: 20121005
  4. PREDNISONE [Concomitant]
     Indication: CROHN^S DISEASE
     Route: 064
     Dates: start: 20120213, end: 20121005
  5. ZOFRAN [Concomitant]
     Route: 064
     Dates: start: 20120213, end: 20121005
  6. CLOMID [Concomitant]
     Route: 064
     Dates: start: 20120213, end: 20121005
  7. SOLU MEDROL [Concomitant]
     Route: 064
     Dates: start: 2012, end: 2012
  8. PRENATAL VITAMINS [Concomitant]
     Route: 064
     Dates: start: 20120213, end: 20121005

REACTIONS (2)
  - Low birth weight baby [Recovered/Resolved]
  - Foetal exposure during pregnancy [Recovered/Resolved]
